FAERS Safety Report 5805293-1 (Version None)
Quarter: 2008Q4

REPORT INFORMATION
  Report Type: 
  Country: None (occurrence: None)
  Receive Date: 20080707
  Receipt Date: 20080623
  Transmission Date: 20090506
  Serious: Yes (Disabling)
  Sender: FDA-Public Use
  Company Number: APP200800275

PATIENT
  Age: 15 Year
  Sex: Female

DRUGS (5)
  1. SENSORCAINE [Suspect]
     Indication: MUSCULOSKELETAL PAIN
     Dosage: CONTINUOUS VIA PAIN PUMP
     Dates: start: 20030301
  2. NAROPIN [Suspect]
     Indication: MUSCULOSKELETAL PAIN
     Dosage: CONTINUOUS VIA PAIN PUMP
     Dates: start: 20030301
  3. ORATEC ANGLE TIP TAC-S PROBE [Suspect]
     Indication: SURGERY
     Dates: start: 20030327
  4. DJ ORTHO PIAN BUSTER PAIN PUMP [Suspect]
     Indication: MUSCULOSKELETAL PAIN
     Dates: start: 20030301
  5. BUPIVACAINE HYDROCHLORIDE AND EPINEPHRINE [Suspect]
     Indication: LOCAL ANAESTHESIA
     Dates: start: 20041025

REACTIONS (6)
  - ARTHRITIS [None]
  - CHONDROLYSIS [None]
  - CHONDROMALACIA [None]
  - MUSCULOSKELETAL DISCOMFORT [None]
  - MUSCULOSKELETAL PAIN [None]
  - ROTATOR CUFF SYNDROME [None]
